FAERS Safety Report 4567164-0 (Version None)
Quarter: 2005Q1

REPORT INFORMATION
  Report Type: 
  Country: None (occurrence: None)
  Receive Date: 20050201
  Receipt Date: 20041122
  Transmission Date: 20050727
  Serious: Yes (Other)
  Sender: FDA-Public Use
  Company Number: US-GLAXOSMITHKLINE-A0534891A

PATIENT
  Sex: Male

DRUGS (1)
  1. WELLBUTRIN [Suspect]
     Indication: DRUG USE FOR UNKNOWN INDICATION
     Dates: start: 20041111

REACTIONS (8)
  - AGITATION [None]
  - ANGER [None]
  - BELLIGERENCE [None]
  - DELUSIONAL DISORDER, PERSECUTORY TYPE [None]
  - EMOTIONAL DISORDER [None]
  - MUSCLE SPASMS [None]
  - PSYCHOTIC DISORDER [None]
  - TENSION [None]
